FAERS Safety Report 5814171-3 (Version None)
Quarter: 2008Q3

REPORT INFORMATION
  Report Type: 
  Country: None (occurrence: None)
  Receive Date: 20080717
  Receipt Date: 20080708
  Transmission Date: 20090109
  Serious: Yes (Hospitalization)
  Sender: FDA-Public Use
  Company Number: JP-MERCK-0807USA01634

PATIENT
  Age: 83 Year
  Sex: Female

DRUGS (1)
  1. ZETIA [Suspect]
     Indication: HYPERCHOLESTEROLAEMIA
     Route: 048
     Dates: start: 20080603, end: 20080622

REACTIONS (4)
  - BLOOD PRESSURE DECREASED [None]
  - ECZEMA [None]
  - PYREXIA [None]
  - RENAL IMPAIRMENT [None]
